FAERS Safety Report 15918882 (Version 2)
Quarter: 2019Q1

REPORT INFORMATION
  Report Type: Spontaneous
  Country: US (occurrence: US)
  Receive Date: 20190205
  Receipt Date: 20190214
  Transmission Date: 20190417
  Serious: Yes (Death)
  Sender: FDA-Public Use
  Company Number: US-UPSHER-SMITH LABORATORIES, LLC-2019USL00044

PATIENT
  Sex: Male

DRUGS (1)
  1. QUDEXY XR [Suspect]
     Active Substance: TOPIRAMATE

REACTIONS (1)
  - Death [Fatal]
